FAERS Safety Report 7637878-4 (Version None)
Quarter: 2011Q3

REPORT INFORMATION
  Report Type: 
  Country: None (occurrence: None)
  Receive Date: 20110727
  Receipt Date: 20110720
  Transmission Date: 20111222
  Serious: Yes (Other)
  Sender: FDA-Public Use
  Company Number: US-TEVA-291420USA

PATIENT
  Age: 69 Year
  Sex: Female
  Weight: 31.78 kg

DRUGS (2)
  1. GABAPENTIN [Suspect]
     Route: 048
  2. GABAPENTIN [Suspect]
     Indication: NEURALGIA
     Route: 048
     Dates: start: 20070101

REACTIONS (2)
  - RENAL FAILURE [None]
  - AORTIC VALVE CALCIFICATION [None]
